FAERS Safety Report 7367627-9 (Version None)
Quarter: 2011Q1

REPORT INFORMATION
  Report Type: 
  Country: None (occurrence: None)
  Receive Date: 20110322
  Receipt Date: 20110315
  Transmission Date: 20110831
  Serious: Yes (Other)
  Sender: FDA-Public Use
  Company Number: US-ABBOTT-11P-163-0712755-00

PATIENT
  Sex: Female
  Weight: 63.56 kg

DRUGS (15)
  1. GABAPENTIN [Concomitant]
     Indication: NEUROPATHY PERIPHERAL
  2. UNKNOWN MEDICATION [Concomitant]
     Indication: RHEUMATOID ARTHRITIS
     Dosage: INJECTION INTO JOINTS
  3. HUMIRA [Suspect]
     Dates: start: 20110309
  4. GENERIC TOPROL [Concomitant]
     Indication: HYPERTENSION
  5. LEVOXYL [Concomitant]
     Indication: HYPOTHYROIDISM
  6. GABAPENTIN [Concomitant]
     Indication: SCOLIOSIS
  7. HUMIRA [Suspect]
     Indication: RHEUMATOID ARTHRITIS
     Dates: start: 20050101, end: 20110105
  8. HYDROCHLOROTHIAZIDE [Concomitant]
     Indication: HYPERTENSION
     Dosage: DAILY
  9. HYDROCODONE BITARTRATE AND ACETAMINOPHEN [Concomitant]
     Indication: PAIN
  10. LIPITOR [Concomitant]
     Indication: BLOOD CHOLESTEROL INCREASED
  11. UNKNOWN BLOOD PRESSURE MEDICATION [Concomitant]
     Indication: HYPERTENSION
  12. NEXIUM [Concomitant]
     Indication: GASTROOESOPHAGEAL REFLUX DISEASE
  13. GENERIC ALLEGRA [Concomitant]
     Indication: HYPERSENSITIVITY
  14. XANAX [Concomitant]
     Indication: INSOMNIA
  15. AMITRIPTYLINE [Concomitant]
     Indication: INSOMNIA

REACTIONS (4)
  - PAIN IN EXTREMITY [None]
  - BREAST CALCIFICATIONS [None]
  - BREAST MASS [None]
  - BREAST HYPERPLASIA [None]
